FAERS Safety Report 18857498 (Version 3)
Quarter: 2021Q3

REPORT INFORMATION
  Report Type: Spontaneous
  Country: US (occurrence: US)
  Receive Date: 20210208
  Receipt Date: 20210722
  Transmission Date: 20211014
  Serious: Yes (Hospitalization, Other)
  Sender: FDA-Public Use
  Company Number: US-CIPLA LTD.-2021US00783

PATIENT

DRUGS (1)
  1. WARFARIN [Suspect]
     Active Substance: WARFARIN
     Indication: ANTICOAGULANT THERAPY
     Dosage: UNK
     Route: 065
     Dates: start: 2011

REACTIONS (9)
  - Peripheral swelling [Unknown]
  - Haematoma [Unknown]
  - Haematuria [Unknown]
  - Internal haemorrhage [Unknown]
  - Haemoperitoneum [Unknown]
  - Anticoagulation drug level above therapeutic [Unknown]
  - Coagulopathy [Unknown]
  - Contusion [Unknown]
  - Labelled drug-food interaction issue [Unknown]
